FAERS Safety Report 23981030 (Version 1)
Quarter: 2024Q2

REPORT INFORMATION
  Report Type: Spontaneous
  Country: IN (occurrence: IN)
  Receive Date: 20240617
  Receipt Date: 20240617
  Transmission Date: 20240716
  Serious: Yes (Other)
  Sender: FDA-Public Use
  Company Number: IN-ALEMBIC PHARMACUETICALS LIMITED-2024SCAL000840

PATIENT

DRUGS (2)
  1. ITRACONAZOLE [Suspect]
     Active Substance: ITRACONAZOLE
     Indication: Systemic candida
     Dosage: 200 MG PER SINGLE DOSE
     Route: 065
  2. AMIODARONE [Suspect]
     Active Substance: AMIODARONE
     Indication: Systemic candida
     Dosage: 200 MG, QD
     Route: 048

REACTIONS (3)
  - Cardiac arrest [Unknown]
  - Drug interaction [Unknown]
  - Hypotension [Unknown]
